FAERS Safety Report 7077614 (Version 2)
Quarter: 2014Q3

REPORT INFORMATION
  Report Type: Spontaneous
  Country: US (occurrence: None)
  Receive Date: 20090803
  Receipt Date: 20140701
  Transmission Date: 20150326
  Serious: Yes (Hospitalization, Other)
  Sender: FDA-Public Use
  Company Number: 2009S1005211

PATIENT
  Age: 54 Year
  Sex: Female
  Weight: 57 kg

DRUGS (8)
  1. SIMETHICONE [Suspect]
     Active Substance: DIMETHICONE\SILICON DIOXIDE\SIMETHICONE
     Route: 048
  2. PROTONIX [Concomitant]
     Active Substance: PANTOPRAZOLE SODIUM
  3. ZOCOR [Concomitant]
     Active Substance: SIMVASTATIN
  4. ATENOLOL (ATENOLOL) [Concomitant]
     Active Substance: ATENOLOL
  5. LISINOPRIL (LISINOPRIL) [Concomitant]
     Active Substance: LISINOPRIL
  6. CLONAZEPAM (CLONAZEPAM) [Concomitant]
  7. PHOSPHO-SODA [Suspect]
     Active Substance: SODIUM PHOSPHATE, DIBASIC\SODIUM PHOSPHATE, MONOBASIC
     Indication: COLONOSCOPY
     Dosage: PO
     Route: 048
     Dates: start: 20060618, end: 20060619
  8. FLEET NOS [Suspect]
     Active Substance: BISACODYL OR GLYCERIN OR MINERAL OIL OR SODIUM PHOSPHATE, DIBASIC\SODIUM PHOSPHATE, MONOBASIC

REACTIONS (17)
  - Stress [None]
  - Anaemia [None]
  - Diarrhoea [None]
  - Cyst [None]
  - Dizziness exertional [None]
  - Arrhythmia [None]
  - Feeling abnormal [None]
  - Nausea [None]
  - Vomiting [None]
  - Fatigue [None]
  - Renal failure chronic [None]
  - Dehydration [None]
  - Chest discomfort [None]
  - Renal failure [None]
  - Heart rate irregular [None]
  - Renal failure acute [None]
  - Ventricular tachycardia [None]
